FAERS Safety Report 5256425-8 (Version None)
Quarter: 2007Q1

REPORT INFORMATION
  Report Type: 
  Country: None (occurrence: None)
  Receive Date: 20070306
  Receipt Date: 20070302
  Transmission Date: 20070707
  Serious: Yes (Death, Other)
  Sender: FDA-Public Use
  Company Number: US-PURDUE-USA_2007_0026612

PATIENT
  Sex: Male

DRUGS (4)
  1. OXYCODONE HCL [Suspect]
     Indication: DRUG ABUSER
     Dates: end: 20051230
  2. LORTAB [Concomitant]
     Indication: BACK PAIN
     Dates: end: 20051230
  3. CANNABIS [Concomitant]
     Indication: DRUG ABUSER
     Dates: end: 20051230
  4. METHADONE HCL [Concomitant]
     Indication: DRUG USE FOR UNKNOWN INDICATION
     Dates: end: 20051230

REACTIONS (4)
  - ACCIDENT AT WORK [None]
  - DRUG TOXICITY [None]
  - EXSANGUINATION [None]
  - SUBSTANCE ABUSE [None]
